FAERS Safety Report 10078531 (Version 1)
Quarter: 2014Q2

REPORT INFORMATION
  Report Type: Spontaneous
  Country: FR (occurrence: FR)
  Receive Date: 20140415
  Receipt Date: 20140415
  Transmission Date: 20141212
  Serious: Yes (Hospitalization)
  Sender: FDA-Public Use
  Company Number: FR-JNJFOC-20140408527

PATIENT
  Age: 52 Year
  Sex: Female
  Weight: 66 kg

DRUGS (8)
  1. XARELTO [Suspect]
     Indication: EMBOLISM VENOUS
     Route: 048
     Dates: start: 2013
  2. XARELTO [Suspect]
     Indication: EMBOLISM
     Route: 048
     Dates: start: 2013
  3. EPITOMAX [Suspect]
     Indication: MIGRAINE
     Route: 048
     Dates: start: 2013
  4. VENTOLIN [Concomitant]
     Route: 065
  5. STAGID [Concomitant]
     Route: 065
  6. INEXIUM [Concomitant]
     Route: 065
  7. AMLOR [Concomitant]
     Route: 065
  8. VALSARTAN [Concomitant]
     Route: 065

REACTIONS (1)
  - Pancreatitis acute [Recovering/Resolving]
